FAERS Safety Report 4280913-4 (Version None)
Quarter: 2004Q1

REPORT INFORMATION
  Report Type: 
  Country: None (occurrence: None)
  Receive Date: 20040129
  Receipt Date: 20040115
  Transmission Date: 20041129
  Serious: Yes (Other)
  Sender: FDA-Public Use
  Company Number: GB-GLAXOSMITHKLINE-B0319907A

PATIENT
  Sex: Female

DRUGS (2)
  1. SEROXAT [Suspect]
     Dates: start: 20031201
  2. RISPERIDONE [Suspect]
     Dates: start: 20030901

REACTIONS (2)
  - DRUG INTERACTION [None]
  - EXTRAPYRAMIDAL DISORDER [None]
